FAERS Safety Report 4300167-X (Version None)
Quarter: 2004Q1

REPORT INFORMATION
  Report Type: 
  Country: None (occurrence: None)
  Receive Date: 20040218
  Receipt Date: 20040130
  Transmission Date: 20041129
  Serious: Yes (Hospitalization)
  Sender: FDA-Public Use
  Company Number: USA040258147

PATIENT
  Age: 34 Year
  Sex: Female
  Weight: 105 kg

DRUGS (5)
  1. STRATTERA [Suspect]
     Indication: ATTENTION DEFICIT/HYPERACTIVITY DISORDER
     Dosage: 240 MG/DAY
     Dates: start: 20030401
  2. LEXAPRO [Concomitant]
  3. GEODON [Concomitant]
  4. LAMICTAL [Concomitant]
  5. TOPAMAX [Concomitant]

REACTIONS (5)
  - FEELING ABNORMAL [None]
  - HALLUCINATION [None]
  - MANIA [None]
  - TOXICOLOGIC TEST ABNORMAL [None]
  - WEIGHT INCREASED [None]
